FAERS Safety Report 9286152 (Version 1)
Quarter: 2013Q2

REPORT INFORMATION
  Report Type: Report from Study
  Country: ZA (occurrence: ZA)
  Receive Date: 20130513
  Receipt Date: 20130513
  Transmission Date: 20140414
  Serious: Yes (Death, Hospitalization)
  Sender: FDA-Public Use
  Company Number: ZA-B.I. PHARMACEUTICALS,INC./RIDGEFIELD-2013-BI-12839GD

PATIENT
  Age: 25 Year
  Sex: Female

DRUGS (7)
  1. VIRAMUNE [Suspect]
     Indication: HIV INFECTION
  2. COTRIMOXAZOLE [Suspect]
     Indication: PROPHYLAXIS
  3. STAVUDINE [Suspect]
     Indication: HIV INFECTION
  4. LAMIVUDINE [Suspect]
     Indication: HIV INFECTION
  5. ENALAPRIL [Concomitant]
  6. FUROSEMIDE [Concomitant]
  7. VITAMIN B CO [Concomitant]

REACTIONS (6)
  - Shock [Fatal]
  - Pericardial effusion [Unknown]
  - Disseminated tuberculosis [Unknown]
  - Sepsis [Unknown]
  - Hypertension [Unknown]
  - Liver disorder [Unknown]
